FAERS Safety Report 5149029-9 (Version None)
Quarter: 2006Q4

REPORT INFORMATION
  Report Type: 
  Country: None (occurrence: None)
  Receive Date: 20061108
  Receipt Date: 20061025
  Transmission Date: 20070319
  Serious: Yes (Life-Threatening)
  Sender: FDA-Public Use
  Company Number: PAR_0857_2006

PATIENT
  Age: 14 Year
  Sex: Female

DRUGS (1)
  1. ADOXA [Suspect]
     Dosage: 150 MG QDAY PO
     Route: 048
     Dates: start: 20060908, end: 20060928

REACTIONS (6)
  - CSF PRESSURE INCREASED [None]
  - HEADACHE [None]
  - INTRACRANIAL PRESSURE INCREASED [None]
  - NAUSEA [None]
  - VISION BLURRED [None]
  - VOMITING [None]
